FAERS Safety Report 6181492-7 (Version None)
Quarter: 2009Q2

REPORT INFORMATION
  Report Type: 
  Country: None (occurrence: None)
  Receive Date: 20090506
  Receipt Date: 20090430
  Transmission Date: 20091009
  Serious: Yes (Death, Other)
  Sender: FDA-Public Use
  Company Number: US-ROXANE LABORATORIES, INC.-2009-RO-00426RO

PATIENT
  Age: 59 Year
  Sex: Male

DRUGS (4)
  1. PREDNISONE [Suspect]
     Indication: RHEUMATOID ARTHRITIS
     Dosage: 20MG
  2. PREDNISONE [Suspect]
     Dosage: 40MG
  3. VANCOMYCIN HCL [Concomitant]
     Indication: STAPHYLOCOCCAL BACTERAEMIA
  4. NAFCILLIN SODIUM [Concomitant]
     Indication: STAPHYLOCOCCAL BACTERAEMIA

REACTIONS (7)
  - ARTHRITIS BACTERIAL [None]
  - CALCINOSIS [None]
  - DISSEMINATED INTRAVASCULAR COAGULATION [None]
  - ESCHERICHIA INFECTION [None]
  - HAEMORRHAGE [None]
  - SEPSIS [None]
  - STAPHYLOCOCCAL BACTERAEMIA [None]
